FAERS Safety Report 22945000 (Version 4)
Quarter: 2024Q1

REPORT INFORMATION
  Report Type: Spontaneous
  Country: US (occurrence: US)
  Receive Date: 20230914
  Receipt Date: 20240105
  Transmission Date: 20240409
  Serious: No
  Sender: FDA-Public Use
  Company Number: US-PFIZER INC-PV202300108241

PATIENT
  Age: 76 Year
  Sex: Female
  Weight: 104.33 kg

DRUGS (3)
  1. IBRANCE [Suspect]
     Active Substance: PALBOCICLIB
     Indication: Breast cancer stage IV
     Dosage: 75 MG, FOR 21 DAYS ON AND 7 DAYS OFF
     Route: 048
     Dates: start: 20230618
  2. ZOMETA [Concomitant]
     Active Substance: ZOLEDRONIC ACID
     Indication: Blood calcium abnormal
     Dosage: DOSE UNKNOWN, THINKS TAKES IT EVERY MONTH NOW FOR MAYBE A YEAR OR SO
     Route: 042
  3. FASLODEX [Concomitant]
     Active Substance: FULVESTRANT
     Dosage: UNK

REACTIONS (2)
  - Memory impairment [Unknown]
  - Stress [Unknown]
